FAERS Safety Report 9674696 (Version 1)
Quarter: 2013Q4

REPORT INFORMATION
  Report Type: Spontaneous
  Country: US (occurrence: None)
  Receive Date: 20131106
  Receipt Date: 20131106
  Transmission Date: 20140711
  Serious: No
  Sender: FDA-Public Use
  Company Number: None

PATIENT
  Age: 42 Year
  Sex: Female
  Weight: 61.24 kg

DRUGS (2)
  1. ESCITALOPRAM [Suspect]
     Indication: ANXIETY
     Dosage: 1 PILL; ONCE DAILY
     Route: 048
  2. ESCITALOPRAM [Suspect]
     Indication: OBSESSIVE-COMPULSIVE DISORDER
     Dosage: 1 PILL; ONCE DAILY
     Route: 048

REACTIONS (4)
  - Product substitution issue [None]
  - Heart rate increased [None]
  - Anxiety [None]
  - Headache [None]
